FAERS Safety Report 10570926 (Version 2)
Quarter: 2014Q4

REPORT INFORMATION
  Report Type: Spontaneous
  Country: BE (occurrence: BE)
  Receive Date: 20141107
  Receipt Date: 20141107
  Transmission Date: 20150529
  Serious: Yes (Hospitalization, Other)
  Sender: FDA-Public Use
  Company Number: BE-ELI_LILLY_AND_COMPANY-BE201410006613

PATIENT
  Age: 45 Year
  Sex: Female
  Weight: 102 kg

DRUGS (15)
  1. ZYPADHERA [Suspect]
     Active Substance: OLANZAPINE PAMOATE
     Indication: PSYCHOTIC DISORDER
     Dosage: 300 MG, 2/M
     Route: 030
     Dates: start: 20140905, end: 20140914
  2. FRAXIPARINE                        /01437701/ [Concomitant]
     Active Substance: NADROPARIN CALCIUM
     Dosage: UNK
     Dates: start: 20140914, end: 20140920
  3. SYCREST [Concomitant]
     Active Substance: ASENAPINE MALEATE
     Dosage: UNK
     Dates: start: 20140807, end: 20140910
  4. URFADYN [Concomitant]
     Active Substance: NIFURTOINOL
     Dosage: UNK
     Dates: start: 20140917, end: 20140920
  5. AKINETON [Concomitant]
     Active Substance: BIPERIDEN HYDROCHLORIDE
     Dosage: 2 MG, UNK
     Dates: start: 20140916, end: 20140920
  6. SEROQUEL [Concomitant]
     Active Substance: QUETIAPINE FUMARATE
     Dosage: 300 MG, UNK
     Dates: start: 20140830, end: 20140906
  7. ALPRAZOLAM. [Concomitant]
     Active Substance: ALPRAZOLAM
     Dosage: UNK
     Dates: start: 20140807, end: 20140920
  8. ANTABUSE [Concomitant]
     Active Substance: DISULFIRAM
     Dosage: UNK
     Dates: start: 20140807, end: 20140920
  9. TRAZODONE [Concomitant]
     Active Substance: TRAZODONE HYDROCHLORIDE
     Dosage: UNK
     Dates: start: 20140904, end: 20140920
  10. FERROUS SULFATE [Concomitant]
     Active Substance: FERROUS SULFATE\FERROUS SULFATE, DRIED
     Dosage: UNK
     Dates: start: 20140910, end: 20140920
  11. NONAPROX [Concomitant]
     Dosage: 500 MG, UNK
     Dates: start: 20140807, end: 20140920
  12. CLOPIXOL                           /00876702/ [Concomitant]
     Active Substance: ZUCLOPENTHIXOL ACETATE
     Dosage: UNK
     Dates: end: 20140907
  13. STAURODORM                         /00135801/ [Concomitant]
     Dosage: UNK
     Dates: start: 20140807, end: 20140920
  14. BEFACT                             /00527001/ [Concomitant]
     Dosage: UNK
     Dates: start: 20140807, end: 20140920
  15. DEPO-PROVERA [Concomitant]
     Active Substance: MEDROXYPROGESTERONE ACETATE

REACTIONS (15)
  - Sedation [Recovered/Resolved]
  - Agitation [Recovered/Resolved]
  - Tachycardia [Recovered/Resolved]
  - Confusional state [Recovered/Resolved]
  - Disorientation [Recovered/Resolved]
  - Alanine aminotransferase increased [Unknown]
  - Dysarthria [Recovered/Resolved]
  - Extrapyramidal disorder [Recovered/Resolved]
  - Anxiety [Recovered/Resolved]
  - Dizziness [Recovered/Resolved]
  - Aspartate aminotransferase increased [Unknown]
  - Ataxia [Recovered/Resolved]
  - Neutrophil percentage increased [Unknown]
  - Lymphocyte percentage decreased [Unknown]
  - Blood creatine phosphokinase increased [Unknown]

NARRATIVE: CASE EVENT DATE: 20140914
